FAERS Safety Report 5771513-5 (Version None)
Quarter: 2008Q2

REPORT INFORMATION
  Report Type: 
  Country: None (occurrence: None)
  Receive Date: 20080613
  Receipt Date: 20080602
  Transmission Date: 20081010
  Serious: Yes (Other)
  Sender: FDA-Public Use
  Company Number: US-TYCO HEALTHCARE/MALLINCKRODT-T200800946

PATIENT

DRUGS (2)
  1. TECHNESCAN [Suspect]
     Indication: BONE SCAN
     Dosage: 1.3 ML, SINGLE
     Route: 042
     Dates: start: 20080427, end: 20080427
  2. ULTRA-TECHNEKOW [Suspect]
     Indication: BONE SCAN
     Dosage: 20.8 MCI, SINGLE
     Route: 042
     Dates: start: 20080427, end: 20080427

REACTIONS (3)
  - DRUG ADMINISTRATION ERROR [None]
  - INJECTION SITE CELLULITIS [None]
  - INJECTION SITE EXTRAVASATION [None]
